FAERS Safety Report 19113629 (Version 1)
Quarter: 2021Q2

REPORT INFORMATION
  Report Type: Spontaneous
  Country: US (occurrence: US)
  Receive Date: 20210409
  Receipt Date: 20210409
  Transmission Date: 20210717
  Serious: Yes (Hospitalization)
  Sender: FDA-Public Use
  Company Number: None

PATIENT
  Age: 59 Year
  Sex: Female
  Weight: 107.1 kg

DRUGS (11)
  1. VITAMIN D3 [Concomitant]
     Active Substance: CHOLECALCIFEROL
     Dates: start: 20201120
  2. MAGNESIUM OXIDE. [Concomitant]
     Active Substance: MAGNESIUM OXIDE
     Dates: start: 20190624
  3. ELETRIPTAN. [Concomitant]
     Active Substance: ELETRIPTAN
     Dates: start: 20201120
  4. CYANOCOBALAMIN. [Concomitant]
     Active Substance: CYANOCOBALAMIN
  5. ZOFRAN [Concomitant]
     Active Substance: ONDANSETRON HYDROCHLORIDE
     Dates: start: 20201120
  6. CYCLOBENZAPRINE. [Concomitant]
     Active Substance: CYCLOBENZAPRINE
     Dates: start: 20201120
  7. BAMLANIVIMAB/ETESEVIMAB [Suspect]
     Active Substance: BAMLANIVIMAB\ETESEVIMAB
     Indication: COVID-19
     Dosage: ?          OTHER FREQUENCY:ONCE;?
     Route: 041
     Dates: start: 20210405, end: 20210405
  8. ALBUTEROL HFA [Concomitant]
     Active Substance: ALBUTEROL SULFATE
     Dates: start: 20181219, end: 20210401
  9. POTASSIUM CHLORIDE. [Concomitant]
     Active Substance: POTASSIUM CHLORIDE
     Dates: start: 20180603
  10. FUROSEMIDE. [Concomitant]
     Active Substance: FUROSEMIDE
     Dates: start: 20190508, end: 20210406
  11. TRAZODONE [Concomitant]
     Active Substance: TRAZODONE HYDROCHLORIDE
     Dates: start: 20180919, end: 20210406

REACTIONS (19)
  - Headache [None]
  - Hypoxia [None]
  - Myalgia [None]
  - Body temperature decreased [None]
  - Thrombocytopenia [None]
  - Lung opacity [None]
  - COVID-19 pneumonia [None]
  - Fatigue [None]
  - Lung infiltration [None]
  - Heart rate increased [None]
  - Malaise [None]
  - Sinus tachycardia [None]
  - Blood glucose increased [None]
  - Dyspnoea [None]
  - Hypertension [None]
  - Asthenia [None]
  - Feeling abnormal [None]
  - Diarrhoea [None]
  - Respiratory rate increased [None]

NARRATIVE: CASE EVENT DATE: 20210405
